FAERS Safety Report 5144440-4 (Version None)
Quarter: 2006Q4

REPORT INFORMATION
  Report Type: 
  Country: None (occurrence: None)
  Receive Date: 20061031
  Receipt Date: 20061024
  Transmission Date: 20070319
  Serious: No
  Sender: FDA-Public Use
  Company Number: TAP2006Q01743

PATIENT
  Age: 74 Year
  Sex: Male

DRUGS (5)
  1. LUPRON DEPOT-4 [Suspect]
     Indication: PROSTATE CANCER
     Dosage: 30 MG, 1 IN 4 M, INTRAMUSCULAR
     Route: 030
     Dates: start: 20051024
  2. LIPITOR [Concomitant]
  3. RENEDIL (FELODIPINE) [Concomitant]
  4. DEXAMETHASONE TAB [Concomitant]
  5. HALCION [Concomitant]

REACTIONS (4)
  - HEADACHE [None]
  - INSOMNIA [None]
  - METASTASES TO CENTRAL NERVOUS SYSTEM [None]
  - MUSCULAR WEAKNESS [None]
